FAERS Safety Report 4704804-7 (Version None)
Quarter: 2005Q3

REPORT INFORMATION
  Report Type: 
  Country: None (occurrence: None)
  Receive Date: 20050701
  Receipt Date: 20050622
  Transmission Date: 20060218
  Serious: Yes (Hospitalization)
  Sender: FDA-Public Use
  Company Number: 2005UW09685

PATIENT
  Age: 81 Year
  Sex: Male
  Weight: 84 kg

DRUGS (3)
  1. CRESTOR [Suspect]
     Indication: BLOOD CHOLESTEROL INCREASED
     Dosage: WITHHELD IN HOSPITAL
     Route: 048
  2. GLYBURIDE [Concomitant]
     Indication: DIABETES MELLITUS
  3. ALTACE [Concomitant]

REACTIONS (1)
  - CONFUSIONAL STATE [None]
